FAERS Safety Report 7680953-9 (Version None)
Quarter: 2011Q3

REPORT INFORMATION
  Report Type: 
  Country: None (occurrence: None)
  Receive Date: 20110812
  Receipt Date: 20110728
  Transmission Date: 20111222
  Serious: Yes (Hospitalization)
  Sender: FDA-Public Use
  Company Number: ES-ELI_LILLY_AND_COMPANY-ES201108000041

PATIENT
  Sex: Female

DRUGS (11)
  1. METFORMIN HCL [Concomitant]
     Dosage: UNK
     Dates: start: 19960101
  2. SALAGEN [Concomitant]
     Dosage: UNK
     Dates: start: 19950101
  3. NOLOTIL [Concomitant]
     Dosage: UNK
     Dates: start: 20100901
  4. ADOLONTA [Concomitant]
     Dosage: UNK
     Dates: start: 20100901
  5. OMEPRAZOLE [Concomitant]
     Dosage: UNK
     Dates: start: 19960101
  6. FLATORIL [Concomitant]
     Dosage: UNK
     Dates: start: 19960101
  7. DEPRELIO [Concomitant]
     Dosage: UNK
     Dates: start: 19960101
  8. CARBOPLATIN [Suspect]
     Indication: NON-SMALL CELL LUNG CANCER
     Dosage: 486 MG, OTHER (ONCE EVERY 21 DAYS)
     Route: 042
     Dates: start: 20101014
  9. GEMCITABINE HYDROCHLORIDE [Suspect]
     Indication: NON-SMALL CELL LUNG CANCER
     Dosage: 1620 MG, OTHER (ON DAY ONE AND EIGHT OF A 21 DAY CYCLE)
     Route: 042
     Dates: start: 20101014
  10. SIMVASTATIN [Concomitant]
     Dosage: UNK
     Dates: start: 19960101
  11. EFFERALGAN                         /00020001/ [Concomitant]
     Dosage: UNK
     Dates: start: 20010209

REACTIONS (1)
  - PNEUMONIA [None]
